FAERS Safety Report 13131829 (Version 8)
Quarter: 2018Q2

REPORT INFORMATION
  Report Type: Report from Study
  Country: US (occurrence: US)
  Receive Date: 20170119
  Receipt Date: 20180620
  Transmission Date: 20180711
  Serious: Yes (Hospitalization, Other)
  Sender: FDA-Public Use
  Company Number: US-009507513-1701USA008644

PATIENT
  Age: 82 Year
  Sex: Female

DRUGS (34)
  1. PEMBROLIZUMAB. [Suspect]
     Active Substance: PEMBROLIZUMAB
     Indication: NON-SMALL CELL LUNG CANCER
     Dosage: 200 MG, EVERY 3 WEEKS (Q21DAYS)
     Route: 042
     Dates: start: 20170117, end: 20170117
  2. PEMBROLIZUMAB. [Suspect]
     Active Substance: PEMBROLIZUMAB
     Dosage: 200 MG, EVERY 3 WEEKS (Q21DAYS)
     Route: 042
     Dates: start: 20170228, end: 20170228
  3. PEMBROLIZUMAB. [Suspect]
     Active Substance: PEMBROLIZUMAB
     Dosage: 200 MG, EVERY 3 WEEKS (Q21DAYS)
     Route: 042
     Dates: start: 20170411, end: 20170411
  4. PEMBROLIZUMAB. [Suspect]
     Active Substance: PEMBROLIZUMAB
     Dosage: UNK, Q3W
     Route: 042
     Dates: start: 20170927, end: 20170927
  5. RITUXAN [Suspect]
     Active Substance: RITUXIMAB
     Indication: CHRONIC LYMPHOCYTIC LEUKAEMIA
     Dosage: UNK; REPORTED AS ^INFUSION^
     Route: 042
     Dates: start: 20170411, end: 20170411
  6. LEVOTHYROXINE SODIUM. [Concomitant]
     Active Substance: LEVOTHYROXINE SODIUM
     Dosage: UNK
     Route: 048
  7. ASPIRIN. [Concomitant]
     Active Substance: ASPIRIN
     Dosage: UNK
     Route: 048
  8. CYANOCOBALAMIN. [Concomitant]
     Active Substance: CYANOCOBALAMIN
     Dosage: UNK
  9. PROBIOTICS (UNSPECIFIED) [Concomitant]
     Active Substance: PROBIOTICS NOS
     Dosage: UNK
  10. PEMBROLIZUMAB. [Suspect]
     Active Substance: PEMBROLIZUMAB
     Dosage: 200 MG, EVERY 3 WEEKS (Q21DAYS)
     Route: 042
     Dates: start: 20170321, end: 20170321
  11. PEMBROLIZUMAB. [Suspect]
     Active Substance: PEMBROLIZUMAB
     Dosage: UNK, Q3W
     Route: 042
     Dates: start: 20170906, end: 20170906
  12. PEMBROLIZUMAB. [Suspect]
     Active Substance: PEMBROLIZUMAB
     Dosage: UNK, Q3W
     Route: 042
     Dates: start: 20171130, end: 20171130
  13. HYDROCHLOROTHIAZIDE. [Concomitant]
     Active Substance: HYDROCHLOROTHIAZIDE
     Dosage: UNK
  14. BENAZEPRIL HYDROCHLORIDE. [Concomitant]
     Active Substance: BENAZEPRIL HYDROCHLORIDE
     Dosage: UNK
  15. RITUXAN [Suspect]
     Active Substance: RITUXIMAB
     Dosage: UNK; REPORTED AS ^INFUSION^
     Route: 042
     Dates: start: 20170418, end: 20170418
  16. ATORVASTATIN [Concomitant]
     Active Substance: ATORVASTATIN
     Dosage: UNK
  17. CHOLECALCIFEROL [Concomitant]
     Active Substance: CHOLECALCIFEROL
     Dosage: UNK
  18. PEMBROLIZUMAB. [Suspect]
     Active Substance: PEMBROLIZUMAB
     Dosage: 200 MG, EVERY 3 WEEKS (Q21DAYS)
     Route: 042
     Dates: start: 20170502, end: 20170502
  19. PEMBROLIZUMAB. [Suspect]
     Active Substance: PEMBROLIZUMAB
     Dosage: 200 MG, EVERY 3 WEEKS (ONE DAY MORE THAN A 3-WEEK)
     Route: 042
     Dates: start: 20170614, end: 20170614
  20. PEMBROLIZUMAB. [Suspect]
     Active Substance: PEMBROLIZUMAB
     Dosage: EVERY 3 WEEKS (ONE DAY MORE THAN A 3-WEEK)
     Route: 042
     Dates: start: 20170705, end: 20170705
  21. PEMBROLIZUMAB. [Suspect]
     Active Substance: PEMBROLIZUMAB
     Dosage: UNK, Q3W
     Route: 042
     Dates: start: 20170816, end: 20170816
  22. PEMBROLIZUMAB. [Suspect]
     Active Substance: PEMBROLIZUMAB
     Dosage: UNK, Q3W
     Route: 042
     Dates: start: 20180503, end: 20180503
  23. ASCORBIC ACID. [Concomitant]
     Active Substance: ASCORBIC ACID
     Dosage: UNK
  24. PANTOPRAZOLE [Concomitant]
     Active Substance: PANTOPRAZOLE
     Dosage: UNK
  25. BENADRYL [Concomitant]
     Active Substance: DIPHENHYDRAMINE HYDROCHLORIDE
     Dosage: UNK
  26. PEMBROLIZUMAB. [Suspect]
     Active Substance: PEMBROLIZUMAB
     Dosage: 200 MG, EVERY 3 WEEKS (Q21DAYS)
     Route: 042
     Dates: start: 20170523, end: 20170523
  27. PEMBROLIZUMAB. [Suspect]
     Active Substance: PEMBROLIZUMAB
     Dosage: UNK, Q3W
     Route: 042
     Dates: start: 20170726, end: 20170726
  28. GLIPIZIDE. [Concomitant]
     Active Substance: GLIPIZIDE
     Dosage: UNK
  29. PEMBROLIZUMAB. [Suspect]
     Active Substance: PEMBROLIZUMAB
     Dosage: UNK, Q3W
     Route: 042
     Dates: start: 20171019, end: 20171019
  30. RITUXAN [Suspect]
     Active Substance: RITUXIMAB
     Dosage: UNK; REPORTED AS ^INFUSION^
     Dates: start: 20171207, end: 20171207
  31. BIOTIN [Concomitant]
     Active Substance: BIOTIN
     Dosage: UNK
  32. GABAPENTIN. [Concomitant]
     Active Substance: GABAPENTIN
     Dosage: UNK, AS NEEDED
  33. PEMBROLIZUMAB. [Suspect]
     Active Substance: PEMBROLIZUMAB
     Dosage: UNK
  34. AMLODIPINE [Concomitant]
     Active Substance: AMLODIPINE BESYLATE
     Dosage: UNK

REACTIONS (82)
  - Intervertebral disc protrusion [Unknown]
  - Sciatica [Not Recovered/Not Resolved]
  - Haemoglobin decreased [Unknown]
  - Fatigue [Recovered/Resolved]
  - Rash erythematous [Unknown]
  - Pyrexia [Recovered/Resolved]
  - Nausea [Recovered/Resolved]
  - Cough [Not Recovered/Not Resolved]
  - Malignant neoplasm progression [Unknown]
  - Malignant neoplasm progression [Unknown]
  - White blood cell count decreased [Recovering/Resolving]
  - Nervous system cyst [Unknown]
  - Hypoaesthesia oral [Recovered/Resolved]
  - Hypotension [Recovering/Resolving]
  - White blood cell count increased [Unknown]
  - Increased appetite [Unknown]
  - White blood cell count decreased [Unknown]
  - Fatigue [Not Recovered/Not Resolved]
  - Diarrhoea [Not Recovered/Not Resolved]
  - Nasopharyngitis [Unknown]
  - Tremor [Recovering/Resolving]
  - Urinary tract infection staphylococcal [Recovered/Resolved]
  - Intervertebral disc disorder [Unknown]
  - Neuralgia [Not Recovered/Not Resolved]
  - White blood cell count increased [Unknown]
  - Pain [Recovering/Resolving]
  - Asthenia [Unknown]
  - Fatigue [Recovered/Resolved]
  - Drug dose omission [Unknown]
  - Transfusion [Unknown]
  - Chills [Recovering/Resolving]
  - Nasopharyngitis [Unknown]
  - Nerve root compression [Unknown]
  - White blood cell count decreased [Unknown]
  - White blood cell count decreased [Recovered/Resolved]
  - Gastrointestinal motility disorder [Recovered/Resolved]
  - Adverse event [Unknown]
  - Nausea [Not Recovered/Not Resolved]
  - Vomiting [Recovered/Resolved]
  - Chills [Recovered/Resolved]
  - Fatigue [Not Recovered/Not Resolved]
  - Diarrhoea [Recovered/Resolved]
  - Influenza like illness [Recovered/Resolved]
  - Wheezing [Unknown]
  - Arthropathy [Unknown]
  - Feeling abnormal [Recovered/Resolved]
  - Oesophagitis [Recovered/Resolved]
  - Decreased appetite [Not Recovered/Not Resolved]
  - Paraesthesia oral [Recovered/Resolved]
  - Visual brightness [Unknown]
  - Ocular icterus [Unknown]
  - Hypoaesthesia [Recovering/Resolving]
  - Malaise [Recovered/Resolved]
  - Paraesthesia [Recovered/Resolved]
  - Constipation [Recovered/Resolved]
  - Decreased appetite [Unknown]
  - Rash pruritic [Not Recovered/Not Resolved]
  - Vomiting [Recovered/Resolved]
  - Altered state of consciousness [Unknown]
  - Blood uric acid increased [Unknown]
  - Inappropriate affect [Recovered/Resolved]
  - Decubitus ulcer [Unknown]
  - Atypical pneumonia [Not Recovered/Not Resolved]
  - Depression [Unknown]
  - Hypoaesthesia [Recovered/Resolved]
  - Platelet count decreased [Unknown]
  - Dry mouth [Recovered/Resolved]
  - Weight decreased [Not Recovered/Not Resolved]
  - Vomiting [Recovered/Resolved]
  - Asthenia [Unknown]
  - Vertebral column mass [Unknown]
  - Inappropriate schedule of drug administration [Unknown]
  - Cataract [Unknown]
  - Carpal tunnel syndrome [Recovered/Resolved]
  - Pyrexia [Recovering/Resolving]
  - Tremor [Recovered/Resolved]
  - White blood cell count decreased [Unknown]
  - Alopecia [Not Recovered/Not Resolved]
  - Paraesthesia [Recovering/Resolving]
  - Constipation [Not Recovered/Not Resolved]
  - Pruritus [Recovering/Resolving]
  - Back pain [Not Recovered/Not Resolved]

NARRATIVE: CASE EVENT DATE: 2017
